FAERS Safety Report 13386933 (Version 2)
Quarter: 2017Q2

REPORT INFORMATION
  Report Type: Spontaneous
  Country: US (occurrence: US)
  Receive Date: 20170330
  Receipt Date: 20170424
  Transmission Date: 20170830
  Serious: Yes (Hospitalization, Other)
  Sender: FDA-Public Use
  Company Number: US-ASTRAZENECA-2017SE30966

PATIENT
  Age: 70 Year
  Sex: Female
  Weight: 105.7 kg

DRUGS (8)
  1. PROAIR HFA [Concomitant]
     Active Substance: ALBUTEROL SULFATE
     Indication: INHALATION THERAPY
     Dosage: 90.0UG AS REQUIRED
     Route: 055
  2. LASIX [Concomitant]
     Active Substance: FUROSEMIDE
     Indication: FLUID RETENTION
     Route: 048
     Dates: start: 2016
  3. LOSARTAN. [Concomitant]
     Active Substance: LOSARTAN
     Indication: HYPERTENSION
     Route: 048
  4. ALBUTEROL SULFATE INHALATION SOLUTION [Concomitant]
     Active Substance: ALBUTEROL SULFATE
     Indication: PNEUMONIA
     Dosage: 0.083% 2.5 MG/3.0 ML 2 TO 3 TIMES PER DAY FOR 3 TO 4 DAYS PER WEEK IN THE WINTER
     Route: 055
  5. TUDORZA PRESSAIR [Suspect]
     Active Substance: ACLIDINIUM BROMIDE
     Indication: CHRONIC OBSTRUCTIVE PULMONARY DISEASE
     Route: 055
  6. VITAMIN D3 [Concomitant]
     Active Substance: CHOLECALCIFEROL
     Indication: BLOOD CALCIUM DECREASED
     Route: 048
  7. CALCIUM [Concomitant]
     Active Substance: CALCIUM
     Indication: BONE DISORDER
     Route: 048
  8. PRESERVISION OTC [Concomitant]
     Indication: MACULAR DEGENERATION
     Dosage: TWO TIMES A DAY
     Route: 048

REACTIONS (10)
  - Circumstance or information capable of leading to medication error [Unknown]
  - Delayed dark adaptation [Unknown]
  - Wound infection [Unknown]
  - Dyspnoea [Unknown]
  - Blood blister [Unknown]
  - Dyspnoea exertional [Unknown]
  - Limb injury [Unknown]
  - Fall [Recovered/Resolved]
  - Chest discomfort [Unknown]
  - Device issue [Unknown]

NARRATIVE: CASE EVENT DATE: 2016
